FAERS Safety Report 7495696-4 (Version None)
Quarter: 2011Q2

REPORT INFORMATION
  Report Type: 
  Country: None (occurrence: None)
  Receive Date: 20110523
  Receipt Date: 20110512
  Transmission Date: 20111010
  Serious: Yes (Other)
  Sender: FDA-Public Use
  Company Number: GB-AMGEN-GBRSP2011015062

PATIENT
  Age: 63 Year
  Sex: Female

DRUGS (7)
  1. METHOTREXATE [Concomitant]
     Dosage: UNK
     Route: 048
  2. ENALAPRIL MALEATE [Concomitant]
  3. ETODOLAC [Concomitant]
     Dosage: 600 MG, UNK
     Route: 048
  4. ATENOLOL [Concomitant]
  5. ENBREL [Suspect]
     Indication: RHEUMATOID ARTHRITIS
     Dosage: 50 MG, WEEKLY
     Route: 058
     Dates: start: 20080818, end: 20090401
  6. BENDROFLUMETHIAZIDE [Concomitant]
  7. SIMVASTATIN [Concomitant]

REACTIONS (2)
  - HYPOAESTHESIA [None]
  - DEMYELINATION [None]
